FAERS Safety Report 4834139-3 (Version None)
Quarter: 2005Q4

REPORT INFORMATION
  Report Type: 
  Country: None (occurrence: None)
  Receive Date: 20051122
  Receipt Date: 20051110
  Transmission Date: 20060501
  Serious: Yes (Death)
  Sender: FDA-Public Use
  Company Number: JP-JNJFOC-20051100955

PATIENT
  Age: 70 Year
  Sex: Male

DRUGS (4)
  1. DUROTEP [Suspect]
     Route: 062
     Dates: start: 20050701, end: 20051031
  2. DUROTEP [Suspect]
     Indication: CANCER PAIN
     Route: 062
     Dates: start: 20050701, end: 20051031
  3. MORPHINE [Concomitant]
     Route: 048
  4. ETODOLAC [Concomitant]

REACTIONS (10)
  - BLADDER CANCER [None]
  - BLOOD PRESSURE DECREASED [None]
  - CERVICAL VERTEBRAL FRACTURE [None]
  - DRUG ADMINISTRATION ERROR [None]
  - PARALYSIS [None]
  - PATHOLOGICAL FRACTURE [None]
  - PYREXIA [None]
  - RESPIRATORY DEPRESSION [None]
  - SPINAL CORD PARALYSIS [None]
  - TACHYCARDIA [None]
